FAERS Safety Report 14983391 (Version 1)
Quarter: 2018Q2

REPORT INFORMATION
  Report Type: Spontaneous
  Country: US (occurrence: US)
  Receive Date: 20180607
  Receipt Date: 20180607
  Transmission Date: 20180711
  Serious: No
  Sender: FDA-Public Use
  Company Number: US-JNJFOC-20180541084

PATIENT
  Age: 87 Year
  Sex: Male
  Weight: 93.9 kg

DRUGS (2)
  1. TYLENOL 8HR [Suspect]
     Active Substance: ACETAMINOPHEN
     Route: 048
  2. TYLENOL 8HR [Suspect]
     Active Substance: ACETAMINOPHEN
     Indication: SCIATICA
     Dosage: ONE TABLET AS NEEDED, NOT GOING OVER THE 6 TABLETS
     Route: 048

REACTIONS (1)
  - Product use in unapproved indication [Unknown]
